FAERS Safety Report 5023413-6 (Version None)
Quarter: 2006Q2

REPORT INFORMATION
  Report Type: 
  Country: None (occurrence: None)
  Receive Date: 20060427
  Receipt Date: 20050519
  Transmission Date: 20061013
  Serious: Yes (Life-Threatening, Hospitalization, Disabling)
  Sender: FDA-Public Use
  Company Number: WAES 0505USA02750

PATIENT
  Age: 55 Year
  Sex: Female
  Weight: 74.8435 kg

DRUGS (5)
  1. SR INDOCIN SR [Suspect]
     Indication: HEART DISEASE CONGENITAL
     Dosage: 75 MG/BID/PO
     Route: 048
     Dates: start: 19900201, end: 19911101
  2. SR INDOCIN SR [Suspect]
     Indication: OPEN FRACTURE
     Dosage: 75 MG/BID/PO
     Route: 048
     Dates: start: 19900201, end: 19911101
  3. LORA TAB [Concomitant]
  4. MOTRIN [Concomitant]
  5. NEXIUM [Concomitant]

REACTIONS (4)
  - ABDOMINAL PAIN UPPER [None]
  - DYSPEPSIA [None]
  - INTESTINAL OBSTRUCTION [None]
  - VOMITING [None]
